FAERS Safety Report 12628705 (Version 1)
Quarter: 2016Q3

REPORT INFORMATION
  Report Type: Spontaneous
  Country: US (occurrence: None)
  Receive Date: 20160805
  Receipt Date: 20160805
  Transmission Date: 20161109
  Serious: No
  Sender: FDA-Public Use
  Company Number: None

PATIENT

DRUGS (1)
  1. CAFFEINE AND SODIUM BENZOATE [Suspect]
     Active Substance: CAFFEINE\SODIUM BENZOATE
     Dosage: INJECTABLE  IM OR SLOW IV USE

REACTIONS (2)
  - Product selection error [None]
  - Product label issue [None]
